FAERS Safety Report 12790243 (Version 1)
Quarter: 2016Q3

REPORT INFORMATION
  Report Type: Spontaneous
  Country: DK (occurrence: FR)
  Receive Date: 20160928
  Receipt Date: 20160928
  Transmission Date: 20161109
  Serious: Yes (Hospitalization)
  Sender: FDA-Public Use
  Company Number: FR-ALLERGAN-1000087684

PATIENT
  Age: 38 Year
  Sex: Female

DRUGS (1)
  1. SEROPRAM [Suspect]
     Active Substance: CITALOPRAM HYDROBROMIDE
     Indication: DEPRESSION
     Dosage: 20 MG, QD
     Route: 048
     Dates: start: 2002, end: 20160529

REACTIONS (4)
  - Pregnancy [Unknown]
  - Polyhydramnios [Recovered/Resolved]
  - Foetal non-stress test abnormal [Recovered/Resolved]
  - Exposure during pregnancy [None]

NARRATIVE: CASE EVENT DATE: 20160529
